FAERS Safety Report 19698324 (Version 1)
Quarter: 2021Q3

REPORT INFORMATION
  Report Type: Spontaneous
  Country: US (occurrence: US)
  Receive Date: 20210813
  Receipt Date: 20210813
  Transmission Date: 20211014
  Serious: Yes (Hospitalization)
  Sender: FDA-Public Use
  Company Number: US-GW PHARMA-202107USGW03673

PATIENT

DRUGS (1)
  1. EPIDIOLEX [Suspect]
     Active Substance: CANNABIDIOL
     Indication: SEIZURE
     Dosage: 27.50 MG/KG/DAY, 290 MILLIGRAM, BID (FIRST SHIPPED ON 20?FEB?2020)
     Route: 048
     Dates: start: 202002

REACTIONS (3)
  - Prescribed overdose [Unknown]
  - Gastrostomy [Unknown]
  - Respiratory disorder [Unknown]

NARRATIVE: CASE EVENT DATE: 2021
